FAERS Safety Report 13046418 (Version 1)
Quarter: 2016Q4

REPORT INFORMATION
  Report Type: Report from Study
  Country: US (occurrence: US)
  Receive Date: 20161220
  Receipt Date: 20161220
  Transmission Date: 20170207
  Serious: Yes (Other)
  Sender: FDA-Public Use
  Company Number: US-TAKEDA-2016TUS022636

PATIENT
  Age: 47 Year

DRUGS (1)
  1. VEDOLIZUMAB [Suspect]
     Active Substance: VEDOLIZUMAB
     Indication: CROHN^S DISEASE
     Dosage: UNK
     Route: 042

REACTIONS (4)
  - Hernia [Unknown]
  - Enterocolonic fistula [Unknown]
  - Abdominal adhesions [Unknown]
  - Proctocolectomy [Unknown]

NARRATIVE: CASE EVENT DATE: 20160912
